FAERS Safety Report 11071091 (Version 1)
Quarter: 2015Q2

REPORT INFORMATION
  Report Type: Spontaneous
  Country: US (occurrence: None)
  Receive Date: 20150427
  Receipt Date: 20150427
  Transmission Date: 20150821
  Serious: Yes (Life-Threatening, Disabling)
  Sender: FDA-Public Use
  Company Number: None

PATIENT
  Age: 49 Year
  Sex: Female
  Weight: 185 kg

DRUGS (10)
  1. MEVACOR [Suspect]
     Active Substance: LOVASTATIN
  2. EFFEXOR XR EXTENDED-RELEASE [Concomitant]
     Active Substance: VENLAFAXINE HYDROCHLORIDE
  3. LAMICTAL [Concomitant]
     Active Substance: LAMOTRIGINE
  4. RISPERDAL [Concomitant]
     Active Substance: RISPERIDONE
  5. NORCO [Concomitant]
     Active Substance: ACETAMINOPHEN\HYDROCODONE BITARTRATE
  6. FISH OIL [Concomitant]
     Active Substance: FISH OIL
  7. PEPCID [Suspect]
     Active Substance: FAMOTIDINE
  8. SEROQUEL [Concomitant]
     Active Substance: QUETIAPINE FUMARATE
  9. D3 [Concomitant]
     Active Substance: 25-HYDROXYCHOLECALCIFEROL, 5-TRANS-
  10. VIIBRYD [Concomitant]
     Active Substance: VILAZODONE HYDROCHLORIDE

REACTIONS (9)
  - Drug administration error [None]
  - Migraine [None]
  - Mass [None]
  - Pain [None]
  - Bone pain [None]
  - Product quality issue [None]
  - Otorrhoea [None]
  - Gait disturbance [None]
  - Myalgia [None]
